FAERS Safety Report 23271369 (Version 5)
Quarter: 2025Q3

REPORT INFORMATION
  Report Type: Report from Study
  Country: CA (occurrence: CA)
  Receive Date: 20231207
  Receipt Date: 20250708
  Transmission Date: 20251021
  Serious: Yes (Other)
  Sender: TAKEDA
  Company Number: CA-TAKEDA-2020TUS037351

PATIENT
  Age: 73 Year
  Sex: Male

DRUGS (14)
  1. VEDOLIZUMAB [Suspect]
     Active Substance: VEDOLIZUMAB
     Indication: Colitis ulcerative
  2. VEDOLIZUMAB [Suspect]
     Active Substance: VEDOLIZUMAB
     Dosage: 300 MILLIGRAM, Q4WEEKS
     Dates: start: 20201125
  3. VEDOLIZUMAB [Suspect]
     Active Substance: VEDOLIZUMAB
     Dosage: 300 MILLIGRAM, Q4WEEKS
  4. VEDOLIZUMAB [Suspect]
     Active Substance: VEDOLIZUMAB
     Dosage: 300 MILLIGRAM, Q4WEEKS
  5. VEDOLIZUMAB [Suspect]
     Active Substance: VEDOLIZUMAB
     Dosage: 300 MILLIGRAM, Q4WEEKS
  6. VEDOLIZUMAB [Suspect]
     Active Substance: VEDOLIZUMAB
  7. VEDOLIZUMAB [Suspect]
     Active Substance: VEDOLIZUMAB
     Dosage: 300 MILLIGRAM, Q4WEEKS
     Dates: start: 20230808
  8. VEDOLIZUMAB [Suspect]
     Active Substance: VEDOLIZUMAB
     Dosage: 300 MILLIGRAM, Q4WEEKS
  9. VEDOLIZUMAB [Suspect]
     Active Substance: VEDOLIZUMAB
     Dosage: 300 MILLIGRAM, Q4WEEKS
  10. VEDOLIZUMAB [Suspect]
     Active Substance: VEDOLIZUMAB
     Dosage: 300 MILLIGRAM, Q4WEEKS
  11. VEDOLIZUMAB [Suspect]
     Active Substance: VEDOLIZUMAB
     Dosage: 300 MILLIGRAM, Q4WEEKS
  12. VEDOLIZUMAB [Suspect]
     Active Substance: VEDOLIZUMAB
     Dosage: 300 MILLIGRAM, Q4WEEKS
  13. PREDNISONE [Concomitant]
     Active Substance: PREDNISONE
  14. CORTIFOAM [Concomitant]
     Active Substance: HYDROCORTISONE ACETATE

REACTIONS (12)
  - Colitis [Unknown]
  - Asthenia [Unknown]
  - Pollakiuria [Unknown]
  - Dysuria [Recovered/Resolved]
  - Blood pressure systolic increased [Unknown]
  - Heart rate decreased [Unknown]
  - Off label use [Unknown]
  - Abdominal pain [Unknown]
  - Blood pressure increased [Unknown]
  - Constipation [Unknown]
  - Headache [Not Recovered/Not Resolved]
  - Fatigue [Unknown]

NARRATIVE: CASE EVENT DATE: 20200820
